FAERS Safety Report 5988569-7 (Version None)
Quarter: 2008Q4

REPORT INFORMATION
  Report Type: 
  Country: None (occurrence: None)
  Receive Date: 20081210
  Receipt Date: 20081201
  Transmission Date: 20090506
  Serious: Yes (Death, Hospitalization)
  Sender: FDA-Public Use
  Company Number: US-ROCHE-600295

PATIENT
  Sex: Male
  Weight: 49.9 kg

DRUGS (1)
  1. CAPECITABINE [Suspect]
     Indication: COLORECTAL CANCER
     Dosage: TAKEN 6 TABLETS 500 MG AND 2 TABLETS 150 MG.
     Route: 065
     Dates: start: 20081120

REACTIONS (4)
  - ASTHENIA [None]
  - BLOOD GLUCOSE INCREASED [None]
  - DEATH [None]
  - DIARRHOEA [None]
